FAERS Safety Report 16903002 (Version 1)
Quarter: 2019Q4

REPORT INFORMATION
  Report Type: Spontaneous
  Country: US (occurrence: US)
  Receive Date: 20191010
  Receipt Date: 20191010
  Transmission Date: 20200122
  Serious: Yes (Other)
  Sender: FDA-Public Use
  Company Number: US-CORCEPT THERAPEUTICS INC.-US-2019CRT000865

PATIENT
  Age: 57 Year
  Sex: Male

DRUGS (2)
  1. KORLYM [Suspect]
     Active Substance: MIFEPRISTONE
     Dosage: 600 MG, QD
     Route: 048
     Dates: start: 2019
  2. KORLYM [Suspect]
     Active Substance: MIFEPRISTONE
     Indication: CUSHING^S SYNDROME
     Dosage: 300 MG, QD
     Route: 048
     Dates: start: 20190621, end: 2019

REACTIONS (7)
  - Blood pressure decreased [Unknown]
  - Pulmonary congestion [Unknown]
  - Heart rate decreased [Unknown]
  - Dyspnoea [Unknown]
  - Fatigue [Unknown]
  - Oxygen saturation decreased [Unknown]
  - Cough [Unknown]

NARRATIVE: CASE EVENT DATE: 201909
